FAERS Safety Report 9520525 (Version 1)
Quarter: 2013Q3

REPORT INFORMATION
  Report Type: Spontaneous
  Country: GB (occurrence: GB)
  Receive Date: 20130913
  Receipt Date: 20130913
  Transmission Date: 20140515
  Serious: Yes (Other)
  Sender: FDA-Public Use
  Company Number: GB-009507513-1309GBR004961

PATIENT
  Sex: Male

DRUGS (1)
  1. JANUVIA [Suspect]

REACTIONS (2)
  - Neoplasm malignant [Unknown]
  - Dysphagia [Unknown]
